FAERS Safety Report 24023448 (Version 1)
Quarter: 2024Q2

REPORT INFORMATION
  Report Type: Report from Study
  Country: US (occurrence: US)
  Receive Date: 20240627
  Receipt Date: 20240627
  Transmission Date: 20240716
  Serious: No
  Sender: FDA-Public Use
  Company Number: US-ROCHE-3570043

PATIENT
  Age: 67 Year
  Sex: Male

DRUGS (2)
  1. VABYSMO [Suspect]
     Active Substance: FARICIMAB\FARICIMAB-SVOA
     Indication: Glaucoma
     Dosage: CARTON CONTAINING 1 VIAL AND 1 TRANSFER FILTER NEEDLE, MONTHLY
     Route: 050
     Dates: start: 20230417, end: 20240417
  2. VABYSMO [Suspect]
     Active Substance: FARICIMAB\FARICIMAB-SVOA
     Indication: Retinal detachment

REACTIONS (2)
  - Off label use [Unknown]
  - No adverse event [Unknown]
